FAERS Safety Report 23227304 (Version 1)
Quarter: 2023Q4

REPORT INFORMATION
  Report Type: Spontaneous
  Country: ES (occurrence: ES)
  Receive Date: 20231124
  Receipt Date: 20231124
  Transmission Date: 20240110
  Serious: Yes (Other)
  Sender: FDA-Public Use
  Company Number: ES-MALLINCKRODT-MNK202305922

PATIENT
  Age: 34 Year
  Sex: Male

DRUGS (3)
  1. UVADEX [Suspect]
     Active Substance: METHOXSALEN
     Indication: Complications of transplanted lung
     Dosage: UNK
     Route: 050
     Dates: start: 20221109, end: 20230428
  2. ENOXAPARIN [Concomitant]
     Active Substance: ENOXAPARIN
     Indication: Anticoagulant therapy
     Dosage: UNKNOWN (PROCEDURE RATE: 1:10)
  3. OXYGEN [Concomitant]
     Active Substance: OXYGEN
     Indication: Product used for unknown indication
     Dosage: UNK

REACTIONS (3)
  - Complications of transplanted lung [Unknown]
  - Disease progression [Unknown]
  - Product use in unapproved indication [Unknown]

NARRATIVE: CASE EVENT DATE: 20231109
